FAERS Safety Report 9319624 (Version 9)
Quarter: 2015Q2

REPORT INFORMATION
  Report Type: Spontaneous
  Country: US (occurrence: US)
  Receive Date: 20130530
  Receipt Date: 20150409
  Transmission Date: 20150821
  Serious: Yes (Hospitalization, Other)
  Sender: FDA-Public Use
  Company Number: US-GLAXOSMITHKLINE-A1014319A

PATIENT
  Sex: Female
  Weight: 113 kg

DRUGS (8)
  1. FLOLAN [Suspect]
     Active Substance: EPOPROSTENOL SODIUM
     Dosage: UNK
     Dates: start: 20101223
  2. FLOLAN [Suspect]
     Active Substance: EPOPROSTENOL SODIUM
     Dosage: UNK
     Dates: start: 20101223
  3. FLOLAN [Suspect]
     Active Substance: EPOPROSTENOL SODIUM
     Dosage: UNK
     Dates: start: 20101223
  4. FLOLAN [Suspect]
     Active Substance: EPOPROSTENOL SODIUM
     Dosage: 3NG/KG/MIN CONCEN 5,000 NG/ML VIAL 0.5 PUMP RATE 90ML/DAY
     Dates: start: 20101223
  5. REVATIO [Concomitant]
     Active Substance: SILDENAFIL CITRATE
  6. BANDAGE [Suspect]
     Active Substance: UNSPECIFIED INGREDIENT
  7. FLOLAN [Suspect]
     Active Substance: EPOPROSTENOL SODIUM
     Dosage: UNK
     Dates: start: 20101223
  8. FLOLAN [Suspect]
     Active Substance: EPOPROSTENOL SODIUM
     Indication: COR PULMONALE CHRONIC
     Dosage: 4 NG/KG/MINCONCENTRATION 10,000 NG/MLVIAL STRENGTH 0.53 NG/KG/MIN, CONCENTRATION 5,000 NG/ML, V[...]
     Route: 042
     Dates: start: 20101208, end: 201405

REACTIONS (10)
  - Infection [Recovered/Resolved]
  - Allergy to chemicals [Unknown]
  - Pruritus [Recovered/Resolved]
  - Dermatitis contact [Unknown]
  - Device related infection [Recovered/Resolved]
  - Catheter site pain [Recovered/Resolved]
  - Catheter site erythema [Recovered/Resolved]
  - Thrombosis [Recovered/Resolved]
  - Catheter site vesicles [Recovered/Resolved]
  - Application site papules [Recovered/Resolved]
